FAERS Safety Report 5138088-5 (Version None)
Quarter: 2006Q4

REPORT INFORMATION
  Report Type: 
  Country: None (occurrence: None)
  Receive Date: 20061030
  Receipt Date: 20060413
  Transmission Date: 20070319
  Serious: No
  Sender: FDA-Public Use
  Company Number: US-GLAXOSMITHKLINE-A0601687A

PATIENT
  Age: 47 Year
  Sex: Female

DRUGS (9)
  1. ADVAIR HFA [Suspect]
     Indication: ASTHMA
     Dosage: 1PUFF TWICE PER DAY
     Route: 055
     Dates: start: 20040101
  2. SINGULAIR [Concomitant]
  3. SPIRIVA [Concomitant]
  4. FLONASE [Concomitant]
  5. ORAL CONTRACEPTIVES [Concomitant]
  6. TOPAMAX [Concomitant]
  7. NEXIUM [Concomitant]
  8. NORTRIPTYLINE HCL [Concomitant]
  9. RELPAX [Concomitant]

REACTIONS (1)
  - ORAL CANDIDIASIS [None]
